FAERS Safety Report 10090627 (Version 2)
Quarter: 2014Q2

REPORT INFORMATION
  Report Type: Spontaneous
  Country: US (occurrence: US)
  Receive Date: 20140421
  Receipt Date: 20140603
  Transmission Date: 20141212
  Serious: Yes (Other)
  Sender: FDA-Public Use
  Company Number: US-FRI-1000066540

PATIENT
  Age: 35 Year
  Sex: Male

DRUGS (8)
  1. CELEXA [Suspect]
     Indication: DEPRESSION
     Dosage: 20 MG
     Route: 048
     Dates: start: 201401
  2. APRISO [Concomitant]
     Indication: COLITIS ULCERATIVE
  3. METHSCOPOLAMINE [Concomitant]
     Indication: IRRITABLE BOWEL SYNDROME
  4. DOXYLAMINE SUCCINATE [Concomitant]
     Indication: INSOMNIA
  5. OMEPRAZOLE [Concomitant]
     Indication: GASTROOESOPHAGEAL REFLUX DISEASE
  6. DIVALPROEX [Concomitant]
     Indication: MIGRAINE
  7. RELPAX [Concomitant]
     Indication: MIGRAINE
     Dosage: AS NEEDED
  8. MVI [Concomitant]

REACTIONS (2)
  - Ear infection [Recovered/Resolved]
  - Sinusitis [Recovered/Resolved]
